FAERS Safety Report 5037919-7 (Version None)
Quarter: 2006Q2

REPORT INFORMATION
  Report Type: 
  Country: None (occurrence: None)
  Receive Date: 20060613
  Receipt Date: 20060426
  Transmission Date: 20061013
  Serious: Yes (Hospitalization)
  Sender: FDA-Public Use
  Company Number: US-JNJFOC-20060103897

PATIENT
  Age: 27 Year
  Sex: Female
  Weight: 56.6996 kg

DRUGS (6)
  1. ORTHO EVRA [Suspect]
     Indication: CONTRACEPTION
     Dosage: TRANSDERMAL
     Route: 062
     Dates: start: 20030501
  2. IMITREX [Concomitant]
  3. LEXAPRO (SSRI) [Concomitant]
  4. PREDNISONE TAB [Concomitant]
  5. VICODIN [Concomitant]
  6. ADVAIR DISKUS 100/50 [Concomitant]

REACTIONS (4)
  - DIPLOPIA [None]
  - INTRACRANIAL VENOUS SINUS THROMBOSIS [None]
  - STRABISMUS [None]
  - VENOUS THROMBOSIS LIMB [None]
